FAERS Safety Report 9102857 (Version 2)
Quarter: 2013Q2

REPORT INFORMATION
  Report Type: Spontaneous
  Country: FR (occurrence: FR)
  Receive Date: 20130219
  Receipt Date: 20130513
  Transmission Date: 20140414
  Serious: Yes (Hospitalization)
  Sender: FDA-Public Use
  Company Number: FR-JNJFOC-20130204691

PATIENT
  Age: 20 Year
  Sex: Female

DRUGS (5)
  1. IXPRIM [Suspect]
     Indication: BACK PAIN
     Route: 048
     Dates: start: 20121222, end: 20121231
  2. BI-PROFENID [Suspect]
     Indication: BACK PAIN
     Route: 048
     Dates: start: 20121222, end: 20121231
  3. TETRAZEPAM [Suspect]
     Indication: BACK PAIN
     Route: 048
     Dates: start: 20121222, end: 20121231
  4. TOPALGIC L.P. 150 MG [Concomitant]
     Indication: PRODUCT USED FOR UNKNOWN INDICATION
     Route: 048
     Dates: start: 20121229, end: 20121231
  5. DOLIPRANE [Concomitant]
     Indication: PRODUCT USED FOR UNKNOWN INDICATION
     Route: 065
     Dates: start: 20121231

REACTIONS (1)
  - Thrombocytopenia [Recovering/Resolving]
